FAERS Safety Report 23426210 (Version 1)
Quarter: 2024Q1

REPORT INFORMATION
  Report Type: Spontaneous
  Country: GB (occurrence: GB)
  Receive Date: 20240122
  Receipt Date: 20240122
  Transmission Date: 20240409
  Serious: Yes (Hospitalization, Other)
  Sender: FDA-Public Use
  Company Number: GB-MHRA-MED-202401100309370160-KHSTZ

PATIENT
  Age: 29 Year
  Sex: Female

DRUGS (1)
  1. ERYTHROMYCIN [Suspect]
     Active Substance: ERYTHROMYCIN
     Indication: Product used for unknown indication
     Dosage: 250G 2 TABLETS 4 TIMES A DAY
     Route: 065
     Dates: start: 20240108

REACTIONS (5)
  - Abdominal distension [Unknown]
  - Abdominal pain upper [Not Recovered/Not Resolved]
  - Dehydration [Unknown]
  - Nausea [Unknown]
  - Medication error [Unknown]

NARRATIVE: CASE EVENT DATE: 20240109
